FAERS Safety Report 16118213 (Version 2)
Quarter: 2019Q2

REPORT INFORMATION
  Report Type: Report from Study
  Country: US (occurrence: US)
  Receive Date: 20190326
  Receipt Date: 20190514
  Transmission Date: 20190711
  Serious: Yes (Hospitalization)
  Sender: FDA-Public Use
  Company Number: US-JNJFOC-20190334581

PATIENT
  Age: 72 Year
  Sex: Female

DRUGS (11)
  1. HYDROXYZINE HCL [Concomitant]
     Active Substance: HYDROXYZINE HYDROCHLORIDE
  2. CALCIUM CARBONATE W/COLECALCIFEROL [Concomitant]
     Active Substance: CALCIUM CARBONATE\CHOLECALCIFEROL
  3. FLUCONAZOLE. [Concomitant]
     Active Substance: FLUCONAZOLE
  4. TRIAMCINOLONE ACETONIDE. [Concomitant]
     Active Substance: TRIAMCINOLONE ACETONIDE
  5. FISH OIL W/TOCOPHEROL [Concomitant]
     Active Substance: FISH OIL\TOCOPHEROL
  6. TACROLIMUS. [Concomitant]
     Active Substance: TACROLIMUS
  7. IMBRUVICA [Suspect]
     Active Substance: IBRUTINIB
     Indication: CHRONIC GRAFT VERSUS HOST DISEASE
     Route: 048
  8. CARVEDILOL. [Concomitant]
     Active Substance: CARVEDILOL
  9. ATORVASTATIN CALCIUM. [Concomitant]
     Active Substance: ATORVASTATIN CALCIUM
  10. ACICLOVIR [Concomitant]
     Active Substance: ACYCLOVIR
  11. PREDNISONE. [Concomitant]
     Active Substance: PREDNISONE

REACTIONS (3)
  - Off label use [Unknown]
  - Incorrect dose administered [Unknown]
  - Platelet count decreased [Unknown]

NARRATIVE: CASE EVENT DATE: 20190318
